FAERS Safety Report 6338309-7 (Version None)
Quarter: 2009Q3

REPORT INFORMATION
  Report Type: 
  Country: None (occurrence: None)
  Receive Date: 20090902
  Receipt Date: 20090824
  Transmission Date: 20100115
  Serious: Yes (Hospitalization, Other)
  Sender: FDA-Public Use
  Company Number: US-ABBOTT-09P-163-0593612-00

PATIENT
  Sex: Female
  Weight: 113.5 kg

DRUGS (2)
  1. HUMIRA [Suspect]
     Indication: CROHN'S DISEASE
     Route: 058
     Dates: start: 20090401
  2. HUMIRA [Suspect]
     Route: 058
     Dates: start: 20090823

REACTIONS (9)
  - CHEST PAIN [None]
  - DIAPHRAGMATIC HERNIA [None]
  - DYSPNOEA [None]
  - LUNG DISORDER [None]
  - MASS [None]
  - PNEUMONIA [None]
  - RENAL FAILURE [None]
  - THYMUS ENLARGEMENT [None]
  - TOTAL LUNG CAPACITY DECREASED [None]
